FAERS Safety Report 6429638-7 (Version None)
Quarter: 2009Q4

REPORT INFORMATION
  Report Type: 
  Country: None (occurrence: None)
  Receive Date: 20091106
  Receipt Date: 20091026
  Transmission Date: 20100525
  Serious: Yes (Other)
  Sender: FDA-Public Use
  Company Number: US-JNJCH-2009025764

PATIENT
  Age: 59 Year
  Sex: Female
  Weight: 71.1 kg

DRUGS (15)
  1. ASPIRIN [Suspect]
     Indication: CARDIOVASCULAR EVENT PROPHYLAXIS
     Route: 048
  2. DIVALPROEX SODIUM [Suspect]
     Indication: CONVULSION
     Dosage: TEXT:500-1000 MG DAILY
     Route: 048
  3. ATENOLOL [Concomitant]
     Indication: HYPERTENSION
     Dosage: TEXT:50 MG /DAY
     Route: 065
  4. BENAZEPRIL HYDROCHLORIDE [Concomitant]
     Indication: HYPERTENSION
     Dosage: TEXT:60 MG /DAY
     Route: 065
  5. HYDROCHLOROTHIAZIDE [Concomitant]
     Indication: HYPERTENSION
     Dosage: TEXT:50 MG /DAY
     Route: 065
  6. GLIPIZIDE [Concomitant]
     Indication: DIABETES MELLITUS
     Dosage: TEXT:10 MG /DAY
     Route: 065
  7. SIMVASTATIN [Concomitant]
     Indication: HYPERLIPIDAEMIA
     Dosage: TEXT:10 MG /DAY
     Route: 065
  8. NIACIN [Concomitant]
     Indication: HYPERLIPIDAEMIA
     Dosage: TEXT:1500 MG /DAY
     Route: 065
  9. LEVOTHYROXINE SODIUM [Concomitant]
     Indication: HYPOTHYROIDISM
     Dosage: TEXT:25 MG /DAY
     Route: 065
  10. RISPERIDONE [Concomitant]
     Indication: PSYCHOTIC DISORDER
     Dosage: TEXT:2.5 MG /DAY
     Route: 065
  11. BROMOCRIPTINE [Concomitant]
     Indication: ADVERSE DRUG REACTION
     Dosage: TEXT:5 MG /DAY
     Route: 065
  12. RANITIDINE [Concomitant]
     Indication: GASTROOESOPHAGEAL REFLUX DISEASE
     Dosage: TEXT:300 MG /DAY
     Route: 065
  13. LACTULOSE [Concomitant]
     Indication: CONSTIPATION
     Dosage: TEXT:30 ML/ DAU
     Route: 065
  14. CALCIUM WITH VITAMIN D [Concomitant]
     Indication: VITAMIN SUPPLEMENTATION
     Dosage: TEXT:UNKNOWN
     Route: 065
  15. VITAMIN E [Concomitant]
     Indication: VITAMIN SUPPLEMENTATION
     Dosage: TEXT:UNKNOWN
     Route: 065

REACTIONS (10)
  - ABNORMAL BEHAVIOUR [None]
  - CONFUSIONAL STATE [None]
  - DIZZINESS [None]
  - DRUG INTERACTION [None]
  - DRUG TOXICITY [None]
  - GRAND MAL CONVULSION [None]
  - INCOHERENT [None]
  - LETHARGY [None]
  - TREMOR [None]
  - URINARY INCONTINENCE [None]
